FAERS Safety Report 7150073-0 (Version None)
Quarter: 2010Q4

REPORT INFORMATION
  Report Type: 
  Country: None (occurrence: None)
  Receive Date: 20101210
  Receipt Date: 20101203
  Transmission Date: 20110411
  Serious: Yes (Death, Hospitalization)
  Sender: FDA-Public Use
  Company Number: BE-CELGENEUS-013-21880-10112784

PATIENT
  Sex: Male
  Weight: 54 kg

DRUGS (6)
  1. REVLIMID [Suspect]
     Indication: MULTIPLE MYELOMA
     Route: 048
     Dates: start: 20100906, end: 20100914
  2. DEXAMETHASONE [Suspect]
     Indication: MULTIPLE MYELOMA
     Route: 048
     Dates: start: 20091013, end: 20101113
  3. ACICLOVIR [Concomitant]
     Route: 048
     Dates: start: 20060101
  4. LEVOTHYROXINE SODIUM [Concomitant]
     Route: 048
     Dates: start: 20050101
  5. OMEPRAZOLE [Concomitant]
     Route: 048
     Dates: start: 20060101
  6. SIFROL [Concomitant]
     Indication: PAIN
     Route: 048
     Dates: start: 20100101

REACTIONS (3)
  - DISEASE PROGRESSION [None]
  - MULTIPLE MYELOMA [None]
  - NEUROPATHY PERIPHERAL [None]
